FAERS Safety Report 4317335-3 (Version None)
Quarter: 2004Q1

REPORT INFORMATION
  Report Type: 
  Country: None (occurrence: None)
  Receive Date: 20040312
  Receipt Date: 20040301
  Transmission Date: 20041129
  Serious: Yes (Death)
  Sender: FDA-Public Use
  Company Number: JP-JNJFOC-20040301097

PATIENT
  Age: 67 Year
  Sex: Male

DRUGS (7)
  1. FENTANYL [Suspect]
     Indication: CANCER PAIN
     Dosage: 2.5 MG, 1 IN 3 DAY, TRANSDERMAL
     Route: 062
     Dates: start: 20030707, end: 20030717
  2. MORPHINE [Concomitant]
  3. PROTEINS, AMINO ACID AND PREPARATIONS (ALL OTHER THERAPEUTIC PRODUCTS) [Concomitant]
  4. SOLITA-T1 (SOLITA-T1 INJECTION) [Concomitant]
  5. FUROSEMIDE [Concomitant]
  6. FAMOTIDINE [Concomitant]
  7. ACETATE RINGER (ALL OTHER NON-THERAPEUTIC PRODUCTS) [Concomitant]

REACTIONS (1)
  - DEATH [None]
